FAERS Safety Report 23146106 (Version 1)
Quarter: 2023Q4

REPORT INFORMATION
  Report Type: Spontaneous
  Country: US (occurrence: US)
  Receive Date: 20231104
  Receipt Date: 20231104
  Transmission Date: 20240110
  Serious: No
  Sender: FDA-Public Use
  Company Number: US-MYLANLABS-2011S1010134

PATIENT
  Age: 68 Year
  Sex: Female
  Weight: 83.9 kg

DRUGS (9)
  1. HYDROCHLOROTHIAZIDE [Suspect]
     Active Substance: HYDROCHLOROTHIAZIDE
     Indication: Blood pressure measurement
     Dosage: UNK
     Route: 048
  2. ACYCLOVIR [Suspect]
     Active Substance: ACYCLOVIR
     Indication: Herpes simplex
     Dosage: UNK UNK,DAILY,,1-2 TABLETS
     Route: 048
     Dates: start: 201011
  3. HYDROXYCHLOROQUINE [Suspect]
     Active Substance: HYDROXYCHLOROQUINE
     Indication: Dermatomyositis
     Dosage: UNK
     Route: 048
     Dates: start: 201103
  4. LEUCOVORIN CALCIUM [Suspect]
     Active Substance: LEUCOVORIN CALCIUM
     Indication: Dermatomyositis
     Dosage: UNK
     Route: 065
     Dates: start: 201104
  5. VITAMINS [Suspect]
     Active Substance: VITAMINS
     Indication: Medical diet
     Dosage: 1 DF,ONCE A DAY,
     Route: 048
  6. METHOTREXATE [Suspect]
     Active Substance: METHOTREXATE
     Indication: Dermatomyositis
     Dosage: 1 DOSAGE FORM, EVERY WEEK
     Route: 048
     Dates: start: 201103
  7. PREDNISONE [Suspect]
     Active Substance: PREDNISONE
     Indication: Dermatomyositis
     Dosage: 20 MG,ONCE A DAY,
     Route: 048
     Dates: start: 201010
  8. PREDNISONE [Suspect]
     Active Substance: PREDNISONE
     Dosage: 20 MG,ONCE A DAY,
     Route: 048
     Dates: start: 201012
  9. PREDNISONE [Suspect]
     Active Substance: PREDNISONE
     Indication: Dermatomyositis
     Dosage: 1 DF,ONCE A DAY,
     Route: 048
     Dates: start: 201010

REACTIONS (5)
  - Rash pruritic [Not Recovered/Not Resolved]
  - Urticaria [Not Recovered/Not Resolved]
  - Reaction to excipient [Not Recovered/Not Resolved]
  - Rash [Unknown]
  - Drug interaction [Not Recovered/Not Resolved]
